FAERS Safety Report 9284228 (Version 1)
Quarter: 2013Q2

REPORT INFORMATION
  Report Type: Spontaneous
  Country: IT (occurrence: IT)
  Receive Date: 20130510
  Receipt Date: 20130510
  Transmission Date: 20140414
  Serious: Yes (Hospitalization)
  Sender: FDA-Public Use
  Company Number: IT-BAYER-2013-055726

PATIENT
  Age: 64 Year
  Sex: Male

DRUGS (7)
  1. CARDIOASPIRIN [Suspect]
     Dosage: 100 MG, QD
     Route: 048
     Dates: start: 20130101, end: 20130420
  2. COUMADIN [Suspect]
     Dosage: 5 MG, PRN
     Route: 048
     Dates: start: 20130101, end: 20130420
  3. LANSOPRAZOLE [Concomitant]
     Dosage: UNK
     Route: 048
  4. FUROSEMIDE [Concomitant]
     Dosage: UNK
     Route: 048
  5. LISINOPRIL [Concomitant]
     Dosage: UNK
     Route: 048
  6. TORVAST [Concomitant]
     Dosage: UNK
     Route: 048
  7. TENORMIN [Concomitant]
     Dosage: UNK
     Route: 048

REACTIONS (3)
  - Haemorrhagic disorder [Recovering/Resolving]
  - Flank pain [Recovering/Resolving]
  - Ecchymosis [Recovering/Resolving]
